FAERS Safety Report 18404820 (Version 1)
Quarter: 2020Q4

REPORT INFORMATION
  Report Type: Spontaneous
  Country: US (occurrence: US)
  Receive Date: 20201020
  Receipt Date: 20201020
  Transmission Date: 20210114
  Serious: Yes (Death)
  Sender: FDA-Public Use
  Company Number: None

PATIENT
  Age: 64 Year
  Sex: Female

DRUGS (2)
  1. BACLOFEN. [Concomitant]
     Active Substance: BACLOFEN
  2. DALFAMPRIDINE 10MG ER MG [Suspect]
     Active Substance: DALFAMPRIDINE
     Indication: MULTIPLE SCLEROSIS
     Route: 048
     Dates: start: 20181031, end: 20200814

REACTIONS (1)
  - Death [None]

NARRATIVE: CASE EVENT DATE: 20200814
